FAERS Safety Report 8310217 (Version 3)
Quarter: 2013Q1

REPORT INFORMATION
  Report Type: Spontaneous
  Country: FR (occurrence: FR)
  Receive Date: 20111223
  Receipt Date: 20130122
  Transmission Date: 20140127
  Serious: Yes (Life-Threatening, Other)
  Sender: FDA-Public Use
  Company Number: FR-PFIZER INC-2011309475

PATIENT
  Age: 42 Year
  Sex: Female

DRUGS (3)
  1. XANAX [Suspect]
     Dosage: UNK
     Route: 048
     Dates: end: 20040217
  2. IMOVANE [Suspect]
     Dosage: UNK
     Route: 048
     Dates: end: 20040217
  3. DEROXAT [Suspect]
     Dosage: UNK
     Route: 048
     Dates: end: 20040217

REACTIONS (9)
  - Hepatitis fulminant [Recovered/Resolved with Sequelae]
  - Liver transplant [Recovered/Resolved with Sequelae]
  - Hepatic encephalopathy [Unknown]
  - Asthenia [Unknown]
  - Decreased appetite [Unknown]
  - Weight decreased [Unknown]
  - Confusional state [Recovered/Resolved]
  - Agitation [Recovered/Resolved]
  - Disorientation [Recovered/Resolved]
